FAERS Safety Report 7777132-3 (Version None)
Quarter: 2011Q3

REPORT INFORMATION
  Report Type: 
  Country: None (occurrence: None)
  Receive Date: 20110926
  Receipt Date: 20110921
  Transmission Date: 20111222
  Serious: Yes (Other)
  Sender: FDA-Public Use
  Company Number: JP-BRISTOL-MYERS SQUIBB COMPANY-16066326

PATIENT
  Age: 80 Year
  Sex: Female

DRUGS (5)
  1. TALION [Concomitant]
     Indication: HYPERTENSION
  2. INDAPAMIDE [Concomitant]
     Indication: HYPERTENSION
  3. IRBESARTAN [Suspect]
     Indication: HYPERTENSION
     Route: 048
     Dates: start: 20110311, end: 20110329
  4. ACETAMINOPHEN [Suspect]
     Indication: HYPERTENSION
     Route: 048
     Dates: start: 20110328, end: 20110329
  5. APAP+SALICYLAMIDE+CAFF+PROMETH [Suspect]
     Indication: HYPERTENSION
     Dates: start: 20110328, end: 20110329

REACTIONS (1)
  - ERYTHEMA MULTIFORME [None]
